FAERS Safety Report 10457984 (Version 2)
Quarter: 2014Q3

REPORT INFORMATION
  Report Type: Report from Study
  Country: GR (occurrence: GR)
  Receive Date: 20140916
  Receipt Date: 20140919
  Transmission Date: 20150326
  Serious: Yes (Other)
  Sender: FDA-Public Use
  Company Number: PHHY2014GR115680

PATIENT
  Age: 59 Year
  Sex: Female
  Weight: 64 kg

DRUGS (2)
  1. AFINITOR [Suspect]
     Active Substance: EVEROLIMUS
     Indication: BREAST CANCER
     Dosage: 10 MG, ONCE/SINGLE
     Route: 048
     Dates: start: 20140814
  2. AROMASIN [Concomitant]
     Active Substance: EXEMESTANE
     Dosage: 5 MG, QD

REACTIONS (9)
  - Syncope [Recovering/Resolving]
  - Swelling face [Recovering/Resolving]
  - Fatigue [Recovering/Resolving]
  - Hypotonia [Recovering/Resolving]
  - Throat irritation [Unknown]
  - Asthenia [Unknown]
  - Chills [Recovering/Resolving]
  - Headache [Recovering/Resolving]
  - Pyrexia [Recovering/Resolving]

NARRATIVE: CASE EVENT DATE: 20140821
